FAERS Safety Report 5320001-9 (Version None)
Quarter: 2007Q1

REPORT INFORMATION
  Report Type: 
  Country: None (occurrence: None)
  Receive Date: 20070209
  Receipt Date: 20070110
  Transmission Date: 20070707
  Serious: Yes (Other)
  Sender: FDA-Public Use
  Company Number: 200619117US

PATIENT
  Age: 50 Year
  Sex: Male

DRUGS (8)
  1. INSULIN GLULISINE (APIDRA) [Suspect]
     Indication: DIABETES MELLITUS NON-INSULIN-DEPENDENT
     Dosage: SC
     Route: 058
  2. LANTUS [Suspect]
     Indication: DIABETES MELLITUS NON-INSULIN-DEPENDENT
  3. OPTICLIK [Suspect]
     Indication: DIABETES MELLITUS NON-INSULIN-DEPENDENT
  4. OPTICLIK [Suspect]
     Indication: DIABETES MELLITUS NON-INSULIN-DEPENDENT
  5. BYETTA [Concomitant]
  6. OLMESARTAN MEDOXOMIL (BENICAR) [Concomitant]
  7. PRAVASTATIN SODIUM (PRAVACHOL) [Concomitant]
  8. POLYCARBOPHYL CALCIUM (FIBERCON ACETYLSALICYLIC ACID) (ASA) [Concomitant]

REACTIONS (2)
  - BLOOD GLUCOSE INCREASED [None]
  - HYPERGLYCAEMIA [None]
